FAERS Safety Report 5136689-1 (Version None)
Quarter: 2006Q4

REPORT INFORMATION
  Report Type: 
  Country: None (occurrence: None)
  Receive Date: 20061023
  Receipt Date: 20061010
  Transmission Date: 20070319
  Serious: Yes (Hospitalization, Other)
  Sender: FDA-Public Use
  Company Number: 2006124396

PATIENT
  Age: 27 Year
  Sex: Male
  Weight: 74.8435 kg

DRUGS (4)
  1. XANAX [Suspect]
     Indication: ADVERSE DRUG REACTION
     Dosage: UNKNOWN
     Dates: start: 20060101, end: 20061006
  2. ZYRTEC [Suspect]
     Indication: HYPERSENSITIVITY
     Dosage: UNKNOWN (10 MG)
  3. ALL OTHER THERAPEUTIC PRODUCTS (ALL OTHER THERAPEUTIC PRODUCTS) [Suspect]
     Indication: NASAL CONGESTION
     Dosage: UNKNOWN
     Dates: end: 20060101
  4. LEXAPRO [Suspect]
     Indication: DEPRESSION
     Dates: start: 20060101, end: 20060101

REACTIONS (13)
  - ANXIETY [None]
  - BACTERIAL INFECTION [None]
  - DIZZINESS [None]
  - DRUG TOXICITY [None]
  - DRY THROAT [None]
  - EAR CONGESTION [None]
  - MALAISE [None]
  - MIDDLE EAR EFFUSION [None]
  - NAUSEA [None]
  - PANIC ATTACK [None]
  - SOMNOLENCE [None]
  - THROAT IRRITATION [None]
  - VISION BLURRED [None]
